FAERS Safety Report 6208774-4 (Version None)
Quarter: 2009Q2

REPORT INFORMATION
  Report Type: 
  Country: None (occurrence: None)
  Receive Date: 20090529
  Receipt Date: 20090521
  Transmission Date: 20091009
  Serious: No
  Sender: FDA-Public Use
  Company Number: US-BAYER-200911601BCC

PATIENT
  Sex: Female
  Weight: 91 kg

DRUGS (4)
  1. ALEVE [Suspect]
     Indication: PAIN IN EXTREMITY
     Dosage: TOTAL DAILY DOSE: 440 MG  UNIT DOSE: 220 MG
     Route: 048
     Dates: end: 20090501
  2. DILTIAZEM [Concomitant]
  3. LOVASTATIN [Concomitant]
  4. UNKNOWN VITAMINS [Concomitant]

REACTIONS (1)
  - PAIN IN EXTREMITY [None]
